FAERS Safety Report 12610451 (Version 1)
Quarter: 2016Q3

REPORT INFORMATION
  Report Type: Spontaneous
  Country: US (occurrence: US)
  Receive Date: 20160801
  Receipt Date: 20160801
  Transmission Date: 20161109
  Serious: No
  Sender: FDA-Public Use
  Company Number: PHEH2016US018750

PATIENT
  Sex: Male

DRUGS (1)
  1. ENTRESTO [Suspect]
     Active Substance: SACUBITRIL\VALSARTAN
     Indication: LEFT VENTRICULAR FAILURE
     Dosage: 50 MG, BID
     Route: 048
     Dates: start: 20160721, end: 20160723

REACTIONS (2)
  - Hypotension [Unknown]
  - Dizziness [Unknown]

NARRATIVE: CASE EVENT DATE: 20160721
